FAERS Safety Report 7094640-1 (Version None)
Quarter: 2010Q4

REPORT INFORMATION
  Report Type: 
  Country: None (occurrence: None)
  Receive Date: 20101110
  Receipt Date: 20101104
  Transmission Date: 20110411
  Serious: Yes (Other)
  Sender: FDA-Public Use
  Company Number: US-PFIZER INC-2010141041

PATIENT
  Sex: Male
  Weight: 72.562 kg

DRUGS (1)
  1. LYRICA [Suspect]
     Indication: OEDEMA PERIPHERAL
     Dosage: UNK, 1X/DAY
     Route: 048
     Dates: start: 20101102, end: 20101103

REACTIONS (3)
  - ANAL SPHINCTER ATONY [None]
  - DIARRHOEA [None]
  - MUSCLE SPASMS [None]
